FAERS Safety Report 8923680 (Version 1)
Quarter: 2012Q4

REPORT INFORMATION
  Report Type: Spontaneous
  Country: US (occurrence: None)
  Receive Date: 20121109
  Receipt Date: 20121109
  Transmission Date: 20130627
  Serious: Yes (Other)
  Sender: FDA-Public Use
  Company Number: 2011S1000884

PATIENT
  Age: 69 Year
  Sex: Male

DRUGS (11)
  1. CUBICIN [Suspect]
     Indication: SPONDYLODISCITIS
  2. CUBICIN [Suspect]
     Indication: EPIDURAL ABSCESS
  3. CUBICIN [Suspect]
  4. CUBICIN [Suspect]
  5. AMLODIPINE [Concomitant]
  6. ZOLPIDEM [Concomitant]
  7. MORPHINE [Concomitant]
  8. ESOMEPRAZOLE [Concomitant]
  9. DALTEPARIN [Concomitant]
  10. METAMIZOLE [Concomitant]
  11. VANCOMYCIN [Concomitant]

REACTIONS (1)
  - Eosinophilic pneumonia [None]
